FAERS Safety Report 7951453-3 (Version None)
Quarter: 2011Q4

REPORT INFORMATION
  Report Type: 
  Country: None (occurrence: None)
  Receive Date: 20111201
  Receipt Date: 20111123
  Transmission Date: 20120403
  Serious: Yes (Other)
  Sender: FDA-Public Use
  Company Number: DE-JNJFOC-20110807319

PATIENT
  Sex: Female
  Weight: 55 kg

DRUGS (3)
  1. STELARA [Suspect]
     Indication: PSORIASIS
     Route: 058
     Dates: start: 20090325, end: 20100401
  2. HUMIRA [Suspect]
     Indication: PSORIASIS
     Route: 058
     Dates: start: 20111101
  3. HUMIRA [Suspect]
     Route: 058
     Dates: start: 20100527, end: 20110601

REACTIONS (2)
  - METASTASES TO LYMPH NODES [None]
  - SQUAMOUS CELL CARCINOMA [None]
